FAERS Safety Report 7085964-2 (Version None)
Quarter: 2010Q4

REPORT INFORMATION
  Report Type: 
  Country: None (occurrence: None)
  Receive Date: 20101008
  Receipt Date: 20100621
  Transmission Date: 20110411
  Serious: Yes (Other)
  Sender: FDA-Public Use
  Company Number: 2010SP035158

PATIENT
  Age: 25 Year
  Sex: Female

DRUGS (2)
  1. TEMODAR [Suspect]
     Indication: BRAIN NEOPLASM
     Dosage: 100 MG; IV, 100 MG; IV
     Route: 042
     Dates: start: 20100329
  2. TEMODAR [Suspect]
     Indication: BRAIN NEOPLASM
     Dosage: 100 MG; IV, 100 MG; IV
     Route: 042
     Dates: start: 20100426

REACTIONS (2)
  - CONVULSION [None]
  - MEDICATION ERROR [None]
